FAERS Safety Report 7450496-6 (Version None)
Quarter: 2011Q2

REPORT INFORMATION
  Report Type: 
  Country: None (occurrence: None)
  Receive Date: 20110422
  Receipt Date: 20110408
  Transmission Date: 20111010
  Serious: Yes (Death, Congenital Anomaly)
  Sender: FDA-Public Use
  Company Number: 030980

PATIENT

DRUGS (2)
  1. ANTIEPILEPTICS [Concomitant]
  2. LACOSAMIDE [Suspect]
     Indication: EPILEPSY
     Dosage: (TRANSPLACENTAL)
     Route: 062

REACTIONS (2)
  - MULTIPLE CONGENITAL ABNORMALITIES [None]
  - MATERNAL DRUGS AFFECTING FOETUS [None]
